FAERS Safety Report 8968092 (Version 2)
Quarter: 2012Q4

REPORT INFORMATION
  Report Type: Report from Study
  Country: IT (occurrence: IT)
  Receive Date: 20121218
  Receipt Date: 20121228
  Transmission Date: 20130627
  Serious: Yes (Death)
  Sender: FDA-Public Use
  Company Number: IT-CELGENEUS-083-22393-12061613

PATIENT
  Age: 60 Year
  Sex: Female

DRUGS (3)
  1. ISTODAX [Suspect]
     Indication: MULTIPLE MYELOMA
     Route: 065
     Dates: start: 20111111, end: 20120109
  2. VELCADE [Concomitant]
     Indication: MULTIPLE MYELOMA
     Route: 065
     Dates: start: 201111, end: 201201
  3. DEXAMETHASONE [Concomitant]
     Indication: MULTIPLE MYELOMA
     Route: 065
     Dates: start: 201111, end: 201201

REACTIONS (1)
  - Plasma cell myeloma [Fatal]
